FAERS Safety Report 19926947 (Version 2)
Quarter: 2021Q4

REPORT INFORMATION
  Report Type: Spontaneous
  Country: ES (occurrence: ES)
  Receive Date: 20211006
  Receipt Date: 20211117
  Transmission Date: 20220303
  Serious: No
  Sender: FDA-Public Use
  Company Number: ES-JNJFOC-20211003622

PATIENT
  Sex: Male

DRUGS (27)
  1. FENTANYL [Suspect]
     Active Substance: FENTANYL
     Indication: Product used for unknown indication
     Dosage: STRENGTH: 75.00 MCG/HR
     Route: 062
  2. FENTANYL [Suspect]
     Active Substance: FENTANYL
  3. FENTANYL [Suspect]
     Active Substance: FENTANYL
  4. FENTANYL [Suspect]
     Active Substance: FENTANYL
  5. FENTANYL [Suspect]
     Active Substance: FENTANYL
  6. FENTANYL [Suspect]
     Active Substance: FENTANYL
  7. FENTANYL [Suspect]
     Active Substance: FENTANYL
  8. FENTANYL [Suspect]
     Active Substance: FENTANYL
  9. FENTANYL [Suspect]
     Active Substance: FENTANYL
  10. FENTANYL [Suspect]
     Active Substance: FENTANYL
     Indication: Product used for unknown indication
     Dosage: UNKNOWN
     Route: 062
  11. FENTANYL [Suspect]
     Active Substance: FENTANYL
  12. FENTANYL [Suspect]
     Active Substance: FENTANYL
  13. FENTANYL [Suspect]
     Active Substance: FENTANYL
  14. FENTANYL [Suspect]
     Active Substance: FENTANYL
  15. FENTANYL [Suspect]
     Active Substance: FENTANYL
  16. FENTANYL [Suspect]
     Active Substance: FENTANYL
  17. FENTANYL [Suspect]
     Active Substance: FENTANYL
  18. FENTANYL [Suspect]
     Active Substance: FENTANYL
  19. FENTANYL [Suspect]
     Active Substance: FENTANYL
     Indication: Product used for unknown indication
     Dosage: STRENGTH: 75.00 MCG/HR
     Route: 062
  20. FENTANYL [Suspect]
     Active Substance: FENTANYL
  21. FENTANYL [Suspect]
     Active Substance: FENTANYL
  22. FENTANYL [Suspect]
     Active Substance: FENTANYL
  23. FENTANYL [Suspect]
     Active Substance: FENTANYL
  24. FENTANYL [Suspect]
     Active Substance: FENTANYL
  25. FENTANYL [Suspect]
     Active Substance: FENTANYL
  26. FENTANYL [Suspect]
     Active Substance: FENTANYL
  27. FENTANYL [Suspect]
     Active Substance: FENTANYL

REACTIONS (1)
  - Product packaging quantity issue [Unknown]
